FAERS Safety Report 4321979-2 (Version None)
Quarter: 2004Q1

REPORT INFORMATION
  Report Type: 
  Country: None (occurrence: None)
  Receive Date: 20040319
  Receipt Date: 20040114
  Transmission Date: 20041129
  Serious: No
  Sender: FDA-Public Use
  Company Number: 200400513

PATIENT
  Age: 61 Year
  Sex: Male

DRUGS (1)
  1. LUMIGAN [Suspect]
     Indication: GLAUCOMA
     Dosage: 2 DROP QD EYE
     Route: 047
     Dates: start: 20020101

REACTIONS (2)
  - EYELID OEDEMA [None]
  - EYELID PTOSIS [None]
